FAERS Safety Report 9210598 (Version 1)
Quarter: 2013Q2

REPORT INFORMATION
  Report Type: Spontaneous
  Country: US (occurrence: US)
  Receive Date: 20130404
  Receipt Date: 20130404
  Transmission Date: 20140414
  Serious: Yes (Hospitalization, Other)
  Sender: FDA-Public Use
  Company Number: US-TEVA-395402USA

PATIENT
  Sex: 0

DRUGS (1)
  1. PROGLYCEM [Suspect]
     Dates: start: 2013, end: 2013

REACTIONS (1)
  - Neoplasm malignant [Unknown]
